FAERS Safety Report 17771141 (Version 1)
Quarter: 2020Q2

REPORT INFORMATION
  Report Type: Spontaneous
  Country: IT (occurrence: IT)
  Receive Date: 20200512
  Receipt Date: 20200512
  Transmission Date: 20200714
  Serious: Yes (Other)
  Sender: FDA-Public Use
  Company Number: IT-HARRIS PHARMACEUTICAL-2020HAR00012

PATIENT
  Age: 85 Year
  Sex: Female

DRUGS (7)
  1. FLUCONAZOLE. [Suspect]
     Active Substance: FLUCONAZOLE
     Dosage: 400 MG
     Route: 048
  2. UNSPECIFIED BRONCHODILATORS [Concomitant]
  3. FLUCONAZOLE. [Suspect]
     Active Substance: FLUCONAZOLE
     Indication: CANDIDA INFECTION
     Dosage: 200 MG, 1X/DAY
     Route: 048
  4. PREDNISONE. [Concomitant]
     Active Substance: PREDNISONE
     Dosage: 5 MG, 1X/DAY
     Route: 065
  5. ZINC OXIDE. [Concomitant]
     Active Substance: ZINC OXIDE
     Route: 061
  6. FLUCONAZOLE. [Suspect]
     Active Substance: FLUCONAZOLE
     Dosage: 200 1X/DAY
     Route: 048
  7. MICONAZOLE. [Concomitant]
     Active Substance: MICONAZOLE
     Route: 061

REACTIONS (2)
  - Accidental overdose [Recovered/Resolved]
  - Jarisch-Herxheimer reaction [Recovered/Resolved]
